FAERS Safety Report 18013067 (Version 2)
Quarter: 2021Q1

REPORT INFORMATION
  Report Type: Spontaneous
  Country: US (occurrence: US)
  Receive Date: 20200713
  Receipt Date: 20210317
  Transmission Date: 20210419
  Serious: Yes (Hospitalization, Other)
  Sender: FDA-Public Use
  Company Number: US-AMGEN-USASP2020108859

PATIENT
  Age: 67 Year
  Sex: Female

DRUGS (3)
  1. PROLIA [Suspect]
     Active Substance: DENOSUMAB
     Indication: OSTEOPOROSIS POSTMENOPAUSAL
     Dosage: UNK, Q6MO
     Route: 065
  2. CALCIUM [Concomitant]
     Active Substance: CALCIUM
     Dosage: 6 PILLS A DAY
  3. PROLIA [Suspect]
     Active Substance: DENOSUMAB
     Indication: FRACTURE

REACTIONS (7)
  - Spinal fusion surgery [Unknown]
  - Scoliosis [Unknown]
  - Post procedural infection [Not Recovered/Not Resolved]
  - Blood calcium increased [Not Recovered/Not Resolved]
  - Exostosis of jaw [Unknown]
  - Bone pain [Unknown]
  - Rib fracture [Recovering/Resolving]

NARRATIVE: CASE EVENT DATE: 201809
